FAERS Safety Report 17363074 (Version 1)
Quarter: 2020Q1

REPORT INFORMATION
  Report Type: Spontaneous
  Country: SE (occurrence: SE)
  Receive Date: 20200203
  Receipt Date: 20200203
  Transmission Date: 20200409
  Serious: Yes (Hospitalization)
  Sender: FDA-Public Use
  Company Number: SE-MYLANLABS-2020M1011545

PATIENT
  Sex: Female

DRUGS (1)
  1. CITALOPRAM [Suspect]
     Active Substance: CITALOPRAM HYDROBROMIDE
     Indication: PRODUCT USED FOR UNKNOWN INDICATION
     Dosage: 20 ST ? 20 MG
     Dates: start: 20180720, end: 20180720

REACTIONS (5)
  - Intentional overdose [Unknown]
  - Depressed level of consciousness [Unknown]
  - Snoring [Unknown]
  - Intentional self-injury [Unknown]
  - Hypotension [Unknown]

NARRATIVE: CASE EVENT DATE: 20180720
